FAERS Safety Report 9809880 (Version 4)
Quarter: 2016Q4

REPORT INFORMATION
  Report Type: Spontaneous
  Country: US (occurrence: US)
  Receive Date: 20140110
  Receipt Date: 20161219
  Transmission Date: 20170207
  Serious: Yes (Hospitalization)
  Sender: FDA-Public Use
  Company Number: US-SANOFI-AVENTIS-2013SA067359

PATIENT
  Age: 67 Year
  Sex: Male
  Weight: 82.55 kg

DRUGS (18)
  1. TORSEMIDE. [Concomitant]
     Active Substance: TORSEMIDE
  2. PLAVIX [Suspect]
     Active Substance: CLOPIDOGREL BISULFATE
     Indication: STENT PLACEMENT
     Route: 048
     Dates: start: 20110418, end: 20120829
  3. CAPTOPRIL. [Concomitant]
     Active Substance: CAPTOPRIL
  4. MICRO-K [Concomitant]
     Active Substance: POTASSIUM CHLORIDE
  5. COREG [Concomitant]
     Active Substance: CARVEDILOL
     Dosage: 3.125MG TABLET
     Route: 048
  6. FISH OIL [Concomitant]
     Active Substance: FISH OIL
     Route: 048
  7. NICARDIPINE [Concomitant]
     Active Substance: NICARDIPINE
     Dosage: 30MG
     Route: 048
  8. VITAMIN C [Concomitant]
     Active Substance: ASCORBIC ACID
  9. MICRO-K [Concomitant]
     Active Substance: POTASSIUM CHLORIDE
     Dosage: MICRO-K 10
     Route: 048
  10. ASPIRIN. [Concomitant]
     Active Substance: ASPIRIN
  11. ALLOPURINOL. [Concomitant]
     Active Substance: ALLOPURINOL
     Dosage: 300MG
     Route: 048
  12. LASIX [Concomitant]
     Active Substance: FUROSEMIDE
     Dosage: 20MG
     Route: 048
  13. POTASSIUM [Concomitant]
     Active Substance: POTASSIUM
     Dosage: 20MG
     Route: 048
  14. VITAMIN B12 [Concomitant]
     Active Substance: CYANOCOBALAMIN
     Route: 030
  15. ASPIRIN. [Concomitant]
     Active Substance: ASPIRIN
     Route: 048
     Dates: start: 20020101
  16. SIMVASTATIN. [Concomitant]
     Active Substance: SIMVASTATIN
  17. VITAMIN D [Concomitant]
     Active Substance: CHOLECALCIFEROL
     Dosage: 2000 UNIT CAP, FORM: CAPLET
     Route: 048
  18. CAPOTEN [Concomitant]
     Active Substance: CAPTOPRIL
     Dosage: 50MG
     Route: 048

REACTIONS (3)
  - Rectal haemorrhage [Unknown]
  - Iron deficiency anaemia [Recovered/Resolved]
  - Gastrointestinal haemorrhage [Unknown]

NARRATIVE: CASE EVENT DATE: 20120829
